FAERS Safety Report 4902978-6 (Version None)
Quarter: 2006Q1

REPORT INFORMATION
  Report Type: 
  Country: None (occurrence: None)
  Receive Date: 20060207
  Receipt Date: 20050408
  Transmission Date: 20060701
  Serious: Yes (Hospitalization)
  Sender: FDA-Public Use
  Company Number: US-MERCK-0504USA01643

PATIENT
  Age: 50 Year
  Sex: Male
  Weight: 118 kg

DRUGS (1)
  1. VIOXX [Suspect]
     Indication: ARTHRITIS
     Route: 048
     Dates: start: 20020813, end: 20040930

REACTIONS (1)
  - MYOCARDIAL INFARCTION [None]
